FAERS Safety Report 23827604 (Version 1)
Quarter: 2024Q2

REPORT INFORMATION
  Report Type: Spontaneous
  Country: US (occurrence: US)
  Receive Date: 20240507
  Receipt Date: 20240507
  Transmission Date: 20240716
  Serious: No
  Sender: FDA-Public Use
  Company Number: US-002147023-NVSC2024US094069

PATIENT
  Sex: Male

DRUGS (1)
  1. RIBOCICLIB [Suspect]
     Active Substance: RIBOCICLIB
     Indication: Glioblastoma multiforme
     Dosage: 150 MG, QD
     Route: 065

REACTIONS (2)
  - Nodule [Unknown]
  - Off label use [Unknown]
